FAERS Safety Report 8900076 (Version 3)
Quarter: 2014Q2

REPORT INFORMATION
  Report Type: Spontaneous
  Country: US (occurrence: US)
  Receive Date: 20121109
  Receipt Date: 20140516
  Transmission Date: 20141212
  Serious: Yes (Life-Threatening, Hospitalization)
  Sender: FDA-Public Use
  Company Number: PHEH2012US021921

PATIENT
  Sex: Female

DRUGS (2)
  1. EXFORGE HCT [Suspect]
     Dosage: (320 MG VALS, UNK AMLO AND UNK HYDR), QD
  2. HYDROCHLOROTHIAZIDE [Suspect]
     Dosage: UNK UKN, UNK

REACTIONS (4)
  - Feeling abnormal [Unknown]
  - Blood pressure decreased [Unknown]
  - Blood sodium decreased [Unknown]
  - Drug hypersensitivity [Unknown]
